FAERS Safety Report 7702185-8 (Version None)
Quarter: 2011Q3

REPORT INFORMATION
  Report Type: 
  Country: None (occurrence: None)
  Receive Date: 20110822
  Receipt Date: 20110818
  Transmission Date: 20111222
  Serious: Yes (Death, Other)
  Sender: FDA-Public Use
  Company Number: FI-ABBOTT-11P-055-0731429-00

PATIENT
  Sex: Male

DRUGS (13)
  1. HUMIRA [Suspect]
     Indication: RHEUMATOID ARTHRITIS
     Dates: start: 20090914, end: 20110201
  2. DIOVAN [Concomitant]
     Indication: BLOOD PRESSURE MANAGEMENT
  3. MELATONIN [Concomitant]
     Indication: PRODUCT USED FOR UNKNOWN INDICATION
  4. ANALGESICS [Concomitant]
     Indication: PRODUCT USED FOR UNKNOWN INDICATION
     Dosage: ABOUT 10 TABLETS PER YEAR
  5. IMOVANE [Concomitant]
     Indication: PRODUCT USED FOR UNKNOWN INDICATION
  6. METHOTREXATE SODIUM [Concomitant]
     Indication: PRODUCT USED FOR UNKNOWN INDICATION
     Dates: start: 20090101, end: 20100106
  7. BISOPROLOL FUMARATE [Concomitant]
     Indication: PRODUCT USED FOR UNKNOWN INDICATION
  8. KALCIPOS D [Concomitant]
     Indication: PRODUCT USED FOR UNKNOWN INDICATION
  9. LERCANIDIPINE [Concomitant]
     Indication: PRODUCT USED FOR UNKNOWN INDICATION
     Dosage: DAILY
  10. NEXIUM [Concomitant]
     Indication: GASTRIC DISORDER
     Dosage: DAILY
  11. NEXIUM [Concomitant]
     Indication: PROPHYLAXIS
  12. PREDNISOLONE [Concomitant]
     Indication: PRODUCT USED FOR UNKNOWN INDICATION
     Dosage: DAILY
  13. POTASSIUM MEDICATION [Concomitant]
     Indication: PRODUCT USED FOR UNKNOWN INDICATION
     Dates: start: 20100101

REACTIONS (12)
  - FATIGUE [None]
  - INFLUENZA LIKE ILLNESS [None]
  - HYPOKALAEMIA [None]
  - HAEMORRHAGE [None]
  - VISION BLURRED [None]
  - BALANCE DISORDER [None]
  - MYOCARDIAL INFARCTION [None]
  - CORONARY ARTERY THROMBOSIS [None]
  - DYSURIA [None]
  - PYREXIA [None]
  - DEPRESSED LEVEL OF CONSCIOUSNESS [None]
  - SPEECH DISORDER [None]
